FAERS Safety Report 22592670 (Version 1)
Quarter: 2023Q2

REPORT INFORMATION
  Report Type: Spontaneous
  Country: US (occurrence: US)
  Receive Date: 20230613
  Receipt Date: 20230613
  Transmission Date: 20230722
  Serious: No
  Sender: FDA-Public Use
  Company Number: US-ELI_LILLY_AND_COMPANY-US202306006552

PATIENT
  Age: 65 Year
  Sex: Female

DRUGS (2)
  1. MOUNJARO [Suspect]
     Active Substance: TIRZEPATIDE
     Indication: Type 2 diabetes mellitus
     Dosage: 2.5 MG, UNKNOWN
     Route: 058
     Dates: start: 20230605
  2. MOUNJARO [Suspect]
     Active Substance: TIRZEPATIDE
     Indication: Weight decreased

REACTIONS (7)
  - Hypoaesthesia [Unknown]
  - Back pain [Unknown]
  - Pain in extremity [Unknown]
  - Paraesthesia [Unknown]
  - Nausea [Unknown]
  - Constipation [Unknown]
  - Swelling face [Unknown]

NARRATIVE: CASE EVENT DATE: 20230607
